FAERS Safety Report 23249540 (Version 1)
Quarter: 2023Q4

REPORT INFORMATION
  Report Type: Report from Study
  Country: US (occurrence: US)
  Receive Date: 20231201
  Receipt Date: 20231201
  Transmission Date: 20240109
  Serious: Yes (Hospitalization, Other)
  Sender: FDA-Public Use
  Company Number: US-AMGEN-USACT2023212116

PATIENT
  Age: 65 Year
  Sex: Female
  Weight: 99.8 kg

DRUGS (5)
  1. SOTORASIB [Suspect]
     Active Substance: SOTORASIB
     Indication: Lung adenocarcinoma
     Dosage: TOTAL DOSE ADMINISTERED: 6240 MG
     Route: 065
     Dates: start: 20230914, end: 2023
  2. SOTORASIB [Suspect]
     Active Substance: SOTORASIB
     Dosage: UNK/ CYCLE 3
     Route: 065
     Dates: start: 202310, end: 2023
  3. SOTORASIB [Suspect]
     Active Substance: SOTORASIB
     Dosage: 480 MILLIGRAM, QD/ SOTORASIB RESTARTED AT NEXT DOSE LEVEL
     Route: 065
     Dates: start: 202311
  4. TRELEGY ELLIPTA [Concomitant]
     Active Substance: FLUTICASONE FUROATE\UMECLIDINIUM BROMIDE\VILANTEROL TRIFENATATE
     Dosage: UNK
  5. ZOFRAN [Concomitant]
     Active Substance: ONDANSETRON HYDROCHLORIDE
     Dosage: UNK

REACTIONS (2)
  - Blood creatinine increased [Recovering/Resolving]
  - Alanine aminotransferase increased [Recovered/Resolved]

NARRATIVE: CASE EVENT DATE: 20231031
